FAERS Safety Report 24962600 (Version 2)
Quarter: 2025Q1

REPORT INFORMATION
  Report Type: Spontaneous
  Country: PT (occurrence: PT)
  Receive Date: 20250212
  Receipt Date: 20250217
  Transmission Date: 20250408
  Serious: Yes (Life-Threatening)
  Sender: ROCHE
  Company Number: None

PATIENT
  Age: 49 Year
  Sex: Female

DRUGS (1)
  1. XOLAIR [Suspect]
     Active Substance: OMALIZUMAB
     Indication: Product used for unknown indication
     Dosage: 300 MG, QMO
     Route: 058
     Dates: start: 20231205

REACTIONS (1)
  - Haemorrhage [Recovering/Resolving]

NARRATIVE: CASE EVENT DATE: 20241001
